FAERS Safety Report 6179901-2 (Version None)
Quarter: 2009Q2

REPORT INFORMATION
  Report Type: 
  Country: None (occurrence: None)
  Receive Date: 20090505
  Receipt Date: 20090429
  Transmission Date: 20091009
  Serious: Yes (Hospitalization)
  Sender: FDA-Public Use
  Company Number: FR-ABBOTT-09P-056-0568101-00

PATIENT
  Sex: Female

DRUGS (8)
  1. ZECLAR TABLETS [Suspect]
     Indication: LUNG DISORDER
     Route: 048
     Dates: start: 20090105, end: 20090106
  2. AUGMENTIN '125' [Suspect]
     Indication: LUNG DISORDER
     Route: 048
     Dates: start: 20090104, end: 20090104
  3. NOVONORM [Concomitant]
     Indication: DIABETES MELLITUS
     Route: 048
  4. KARDEGIC [Concomitant]
     Indication: DRUG USE FOR UNKNOWN INDICATION
     Route: 048
  5. LORAZEPAM [Concomitant]
     Indication: DRUG USE FOR UNKNOWN INDICATION
     Route: 048
  6. TIAPRIDAL [Concomitant]
     Indication: DRUG USE FOR UNKNOWN INDICATION
     Route: 048
  7. LANTUS [Concomitant]
     Indication: DIABETES MELLITUS
     Route: 058
  8. CALCIPARINE [Concomitant]
     Indication: DRUG USE FOR UNKNOWN INDICATION
     Route: 058

REACTIONS (1)
  - RENAL FAILURE ACUTE [None]
